FAERS Safety Report 4827285-1 (Version None)
Quarter: 2005Q4

REPORT INFORMATION
  Report Type: 
  Country: None (occurrence: None)
  Receive Date: 20051114
  Receipt Date: 20051108
  Transmission Date: 20060501
  Serious: Yes (Life-Threatening)
  Sender: FDA-Public Use
  Company Number: PHRM2005FR02920

PATIENT
  Age: 38 Year
  Sex: Female

DRUGS (3)
  1. MONURIL [Concomitant]
     Indication: URINARY TRACT INFECTION
     Dosage: 3 G, ONCE/SINGLE
     Route: 048
     Dates: start: 20051006, end: 20051006
  2. DIPROSONE [Concomitant]
     Indication: PSORIASIS
     Route: 061
     Dates: start: 20051001, end: 20051020
  3. LAMISIL [Suspect]
     Dosage: 250 MG, QD
     Route: 048
     Dates: start: 20051006, end: 20051020

REACTIONS (7)
  - ACUTE RESPIRATORY DISTRESS SYNDROME [None]
  - CHEILITIS [None]
  - COMA [None]
  - INFLUENZA [None]
  - RASH PAPULAR [None]
  - SKIN EXFOLIATION [None]
  - TOXIC EPIDERMAL NECROLYSIS [None]
